FAERS Safety Report 7029285-2 (Version None)
Quarter: 2010Q4

REPORT INFORMATION
  Report Type: 
  Country: None (occurrence: None)
  Receive Date: 20101005
  Receipt Date: 20100921
  Transmission Date: 20110411
  Serious: Yes (Other)
  Sender: FDA-Public Use
  Company Number: PHEH2010US03847

PATIENT
  Sex: Female

DRUGS (2)
  1. AREDIA [Suspect]
     Dosage: UNK
     Dates: start: 20060601
  2. FOSAMAX [Suspect]
     Dosage: UNK
     Dates: start: 19950101

REACTIONS (5)
  - ANXIETY [None]
  - BONE DISORDER [None]
  - FEMUR FRACTURE [None]
  - PAIN [None]
  - QUALITY OF LIFE DECREASED [None]
